FAERS Safety Report 12885554 (Version 1)
Quarter: 2016Q4

REPORT INFORMATION
  Report Type: Spontaneous
  Country: JP (occurrence: JP)
  Receive Date: 20161026
  Receipt Date: 20161026
  Transmission Date: 20170207
  Serious: Yes (Hospitalization, Other)
  Sender: FDA-Public Use
  Company Number: JP-GLAXOSMITHKLINE-JP2015JPN125483

PATIENT
  Sex: Female
  Weight: 51 kg

DRUGS (4)
  1. ZEFIX [Suspect]
     Active Substance: LAMIVUDINE
     Indication: CHRONIC HEPATITIS B
     Dosage: 100 MG, QD
     Route: 048
     Dates: start: 2003, end: 20150830
  2. ZEFIX [Suspect]
     Active Substance: LAMIVUDINE
     Indication: VIRAL HEPATITIS CARRIER
  3. HEPSERA [Suspect]
     Active Substance: ADEFOVIR DIPIVOXIL
     Indication: VIRAL HEPATITIS CARRIER
  4. HEPSERA [Suspect]
     Active Substance: ADEFOVIR DIPIVOXIL
     Indication: CHRONIC HEPATITIS B
     Dosage: 10 MG, QD
     Route: 048
     Dates: start: 2003, end: 20150830

REACTIONS (11)
  - Hyperchloraemia [Recovered/Resolved]
  - Electrolyte imbalance [Recovering/Resolving]
  - Hypouricaemia [Recovered/Resolved]
  - Fanconi syndrome acquired [Recovering/Resolving]
  - Drug resistance [Unknown]
  - Renal impairment [Unknown]
  - Bone pain [Unknown]
  - Renal tubular disorder [Unknown]
  - Osteomalacia [Unknown]
  - Pathology test [Unknown]
  - Hypophosphataemia [Unknown]
